FAERS Safety Report 19067577 (Version 1)
Quarter: 2021Q1

REPORT INFORMATION
  Report Type: Spontaneous
  Country: GB (occurrence: GB)
  Receive Date: 20210329
  Receipt Date: 20210329
  Transmission Date: 20210420
  Serious: Yes (Disabling, Other)
  Sender: FDA-Public Use
  Company Number: GB-LEO PHARMA-335525

PATIENT
  Age: 21 Year
  Sex: Female
  Weight: 42 kg

DRUGS (6)
  1. TACROLIMUS. [Suspect]
     Active Substance: TACROLIMUS
     Indication: ECZEMA
     Route: 061
     Dates: start: 20031208, end: 20200616
  2. TACROLIMUS. [Suspect]
     Active Substance: TACROLIMUS
     Indication: ECZEMA
     Route: 061
     Dates: start: 20031208, end: 20200616
  3. HYDROCORTISONE. [Suspect]
     Active Substance: HYDROCORTISONE
     Indication: ECZEMA
     Route: 061
     Dates: start: 20060607, end: 20200616
  4. PROTOPIC [Suspect]
     Active Substance: TACROLIMUS
     Indication: ECZEMA
     Route: 061
     Dates: start: 20070702, end: 20200616
  5. PROTOPIC [Suspect]
     Active Substance: TACROLIMUS
     Indication: ECZEMA
     Route: 061
     Dates: start: 20070702, end: 20200616
  6. TACROLIMUS. [Suspect]
     Active Substance: TACROLIMUS
     Indication: ECZEMA
     Route: 061
     Dates: start: 20031208, end: 20200616

REACTIONS (8)
  - Skin wrinkling [Recovering/Resolving]
  - Insomnia [Recovering/Resolving]
  - Skin exfoliation [Recovering/Resolving]
  - Swelling [Recovering/Resolving]
  - Feeling of body temperature change [Recovering/Resolving]
  - Rash [Recovering/Resolving]
  - Pruritus [Recovering/Resolving]
  - Steroid withdrawal syndrome [Unknown]

NARRATIVE: CASE EVENT DATE: 20200616
